FAERS Safety Report 20491930 (Version 1)
Quarter: 2022Q1

REPORT INFORMATION
  Report Type: Report from Study
  Country: FR (occurrence: FR)
  Receive Date: 20220218
  Receipt Date: 20220218
  Transmission Date: 20220423
  Serious: Yes (Life-Threatening, Hospitalization)
  Sender: FDA-Public Use
  Company Number: FR-CELGENE-FRA-20220205494

PATIENT
  Age: 54 Year
  Sex: Female
  Weight: 74 kg

DRUGS (22)
  1. POMALYST [Suspect]
     Active Substance: POMALIDOMIDE
     Indication: Plasma cell myeloma
     Dosage: 2 MILLIGRAM
     Route: 048
     Dates: start: 20210510, end: 20210901
  2. DARATUMUMAB [Suspect]
     Active Substance: DARATUMUMAB
     Indication: Plasma cell myeloma
     Route: 058
     Dates: start: 20210426
  3. TECLISTAMAB [Suspect]
     Active Substance: TECLISTAMAB
     Indication: Plasma cell myeloma
     Route: 058
     Dates: start: 20210427, end: 20210901
  4. PENICILLIN V [Concomitant]
     Active Substance: PENICILLIN V
     Indication: Infection prophylaxis
     Dosage: 2000000 IU (INTERNATIONAL UNIT)
     Route: 048
     Dates: start: 2017
  5. BACTRIM [Concomitant]
     Active Substance: SULFAMETHOXAZOLE\TRIMETHOPRIM
     Indication: Infection prophylaxis
     Dosage: 400 MILLIGRAM
     Route: 048
     Dates: start: 2017
  6. VALACYCLOVIR HYDROCHLORIDE [Concomitant]
     Active Substance: VALACYCLOVIR HYDROCHLORIDE
     Indication: Infection prophylaxis
     Dosage: 1000 MILLIGRAM
     Route: 048
     Dates: start: 2017
  7. LEUCOVORIN CALCIUM [Concomitant]
     Active Substance: LEUCOVORIN CALCIUM
     Indication: Prophylaxis
     Dosage: 12.5 MILLIGRAM
     Route: 048
     Dates: start: 2017
  8. AMLODIPINE BESYLATE [Concomitant]
     Active Substance: AMLODIPINE BESYLATE
     Indication: Hypertension
     Dosage: 5 MILLIGRAM
     Route: 048
     Dates: start: 2018, end: 20210912
  9. ERYTHROPOIETIN [Concomitant]
     Active Substance: ERYTHROPOIETIN
     Indication: Anaemia prophylaxis
     Dosage: 4285.7143 IU (INTERNATIONAL UNIT)
     Route: 048
     Dates: start: 20210425
  10. CHOLECALCIFEROL [Concomitant]
     Active Substance: CHOLECALCIFEROL
     Indication: Vitamin supplementation
     Dosage: 3333.3333 IU (INTERNATIONAL UNIT)
     Route: 048
     Dates: start: 20210425
  11. POTASSIUM CHLORIDE [Concomitant]
     Active Substance: POTASSIUM CHLORIDE
     Indication: Hypokalaemia
     Dosage: 5400 MILLIGRAM
     Route: 048
     Dates: start: 20210430
  12. ELIQUIS [Concomitant]
     Active Substance: APIXABAN
     Indication: Deep vein thrombosis
     Dosage: 10 MILLIGRAM
     Route: 048
     Dates: start: 20210813, end: 20210915
  13. ELIQUIS [Concomitant]
     Active Substance: APIXABAN
     Dosage: 5 MILLIGRAM
     Route: 048
     Dates: start: 20210915
  14. FILGRASTIM [Concomitant]
     Active Substance: FILGRASTIM
     Indication: Neutropenia
     Dosage: 1 DOSAGE FORMS
     Route: 048
     Dates: start: 20210823, end: 20210823
  15. ACETAMINOPHEN [Concomitant]
     Active Substance: ACETAMINOPHEN
     Indication: Skin lesion
     Dosage: 1 DOSAGE FORMS
     Route: 048
     Dates: start: 20210824
  16. AUGMENTIN [Concomitant]
     Active Substance: AMOXICILLIN\CLAVULANATE POTASSIUM
     Indication: Skin lesion
     Dosage: 1 DOSAGE FORMS
     Route: 048
     Dates: start: 20210824, end: 20210830
  17. AUGMENTIN [Concomitant]
     Active Substance: AMOXICILLIN\CLAVULANATE POTASSIUM
     Indication: Septic shock
     Dosage: 1 DOSAGE FORMS
     Route: 048
     Dates: start: 20210904, end: 202109
  18. AUGMENTIN [Concomitant]
     Active Substance: AMOXICILLIN\CLAVULANATE POTASSIUM
     Indication: Oedema peripheral
  19. SODIUM BICARBONATE [Concomitant]
     Active Substance: SODIUM BICARBONATE
     Indication: Chronic kidney disease
     Dosage: 3 GRAM
     Route: 048
     Dates: start: 2017
  20. TRAMADOL [Concomitant]
     Active Substance: TRAMADOL
     Indication: Skin lesion
     Dosage: 3 GRAM
     Route: 048
     Dates: start: 20210824
  21. CIPROFLOXACIN [Concomitant]
     Active Substance: CIPROFLOXACIN
     Indication: Oedema peripheral
     Dosage: 1000 MG
     Route: 048
     Dates: start: 20210824, end: 20210830
  22. CIPROFLOXACIN [Concomitant]
     Active Substance: CIPROFLOXACIN
     Indication: Septic shock
     Dosage: 1000 MG
     Route: 048
     Dates: start: 20210904, end: 202109

REACTIONS (2)
  - Dermo-hypodermitis [Recovered/Resolved]
  - Septic shock [Recovered/Resolved]

NARRATIVE: CASE EVENT DATE: 20210905
